FAERS Safety Report 4641623-4 (Version None)
Quarter: 2005Q2

REPORT INFORMATION
  Report Type: 
  Country: None (occurrence: None)
  Receive Date: 20050421
  Receipt Date: 20050412
  Transmission Date: 20051028
  Serious: Yes (Other)
  Sender: FDA-Public Use
  Company Number: US-ABBOTT-05P-163-0297152-00

PATIENT
  Age: 4 Year
  Sex: Male
  Weight: 32 kg

DRUGS (5)
  1. SEVOFLURANE [Suspect]
     Indication: MAINTENANCE OF ANAESTHESIA
     Dosage: NOT REPORTED, NOT REPORTED, NOT REPORTED
  2. MIDAZOLAM HCL [Concomitant]
     Indication: INDUCTION OF ANAESTHESIA
     Dosage: NOT REPORTED, NOT REPORTED, NOT REPORTED
  3. THIOPENTAL SODIUM [Concomitant]
     Indication: INDUCTION OF ANAESTHESIA
     Dosage: NOT REPORTED, NOT REPORTED, NOT REPORTED
  4. ROCURONIUM [Concomitant]
     Indication: INTUBATION
     Dosage: NOT REPORTED, NOT REPORTED, NOT REPORTED
  5. FENTANYL [Concomitant]
     Indication: MAINTENANCE OF ANAESTHESIA
     Dosage: NOT REPORTED, NOT REPORTED, NOT REPORTED

REACTIONS (1)
  - RESPIRATORY RATE DECREASED [None]
